FAERS Safety Report 7880306-4 (Version None)
Quarter: 2011Q4

REPORT INFORMATION
  Report Type: 
  Country: None (occurrence: None)
  Receive Date: 20111101
  Receipt Date: 20111025
  Transmission Date: 20120403
  Serious: Yes (Hospitalization)
  Sender: FDA-Public Use
  Company Number: JP-CEPHALON-2011004228

PATIENT
  Sex: Male

DRUGS (6)
  1. SULFAMETHOXAZOLE AND TRIMETHOPRIM [Concomitant]
  2. ACYCLOVIR [Concomitant]
  3. BENDAMUSTINE HCL [Suspect]
     Indication: B-CELL LYMPHOMA
     Route: 042
     Dates: start: 20110526, end: 20110527
  4. BENDAMUSTINE HCL [Suspect]
     Route: 042
     Dates: start: 20110623, end: 20110624
  5. VORICONAZOLE [Concomitant]
  6. RABEPRAZOLE SODIUM [Concomitant]

REACTIONS (1)
  - PNEUMONIA PNEUMOCOCCAL [None]
